FAERS Safety Report 9666690 (Version 1)
Quarter: 2013Q4

REPORT INFORMATION
  Report Type: Spontaneous
  Country: US (occurrence: US)
  Receive Date: 20131104
  Receipt Date: 20131104
  Transmission Date: 20140711
  Serious: No
  Sender: FDA-Public Use
  Company Number: US-ROXANE LABORATORIES, INC.-2013-RO-01781RO

PATIENT
  Age: 67 Year
  Sex: Male

DRUGS (1)
  1. FLUTICASONE [Suspect]
     Indication: RHINITIS
     Route: 045
     Dates: start: 201309

REACTIONS (1)
  - Epistaxis [Not Recovered/Not Resolved]
